FAERS Safety Report 23747651 (Version 1)
Quarter: 2024Q2

REPORT INFORMATION
  Report Type: Spontaneous
  Country: US (occurrence: None)
  Receive Date: 20240415
  Receipt Date: 20240415
  Transmission Date: 20240716
  Serious: No
  Sender: FDA-Public Use
  Company Number: None

PATIENT
  Sex: 0

DRUGS (2)
  1. CIPROFLOXACIN [Suspect]
     Active Substance: CIPROFLOXACIN
     Indication: Urinary tract infection
     Dosage: FREQUENCY : TWICE A DAY;?
     Route: 048
     Dates: start: 20240412, end: 20240414
  2. ALBUTEROL [Concomitant]
     Active Substance: ALBUTEROL

REACTIONS (15)
  - Drug ineffective [None]
  - Fatigue [None]
  - Dizziness [None]
  - Heart rate increased [None]
  - Anxiety [None]
  - Myalgia [None]
  - Muscle spasms [None]
  - Neuropathy peripheral [None]
  - Headache [None]
  - Tendon pain [None]
  - Musculoskeletal stiffness [None]
  - Back pain [None]
  - Musculoskeletal chest pain [None]
  - Pain in extremity [None]
  - Abdominal distension [None]
